FAERS Safety Report 4685484-6 (Version None)
Quarter: 2005Q2

REPORT INFORMATION
  Report Type: 
  Country: None (occurrence: None)
  Receive Date: 20050608
  Receipt Date: 20050101
  Transmission Date: 20051028
  Serious: Yes (Other)
  Sender: FDA-Public Use
  Company Number: PHEH2005US00747

PATIENT
  Age: 51 Year
  Sex: Male
  Weight: 125 kg

DRUGS (8)
  1. ZOMETA [Suspect]
     Indication: METASTASES TO BONE
     Dosage: 4 MG MONTHLY
     Route: 048
     Dates: start: 20020521, end: 20041208
  2. TAXOL [Concomitant]
     Indication: LUNG NEOPLASM MALIGNANT
     Dosage: UNK, QW
     Dates: start: 20040129
  3. DECADRON [Concomitant]
     Dates: start: 20040129
  4. DILANTIN [Concomitant]
  5. COUMADIN [Concomitant]
  6. PROTONIX [Concomitant]
  7. COLACE [Concomitant]
  8. HYDROCODONE BITARTRATE [Concomitant]

REACTIONS (2)
  - OSTEONECROSIS [None]
  - TOOTH EXTRACTION [None]
